FAERS Safety Report 5528287-2 (Version None)
Quarter: 2007Q4

REPORT INFORMATION
  Report Type: 
  Country: None (occurrence: None)
  Receive Date: 20071128
  Receipt Date: 20070919
  Transmission Date: 20080405
  Serious: Yes (Hospitalization)
  Sender: FDA-Public Use
  Company Number: US-ASTRAZENECA-2007UW07542

PATIENT
  Age: 392 Month
  Sex: Female
  Weight: 90.5 kg

DRUGS (9)
  1. SEROQUEL [Suspect]
     Indication: ANXIETY
     Route: 048
     Dates: start: 20030101, end: 20040101
  2. TRAZODONE HCL [Concomitant]
     Dates: start: 20050101
  3. LOXAPINE [Concomitant]
     Dates: start: 20040101, end: 20050101
  4. DEPAKOTE [Concomitant]
     Dates: start: 20040101
  5. VALPROIC ACID [Concomitant]
     Dates: start: 20040101, end: 20050101
  6. BENZTROPINE [Concomitant]
  7. LOXITANE [Concomitant]
  8. FLUOXETINE [Concomitant]
  9. TRIFLUOPERAZINE [Concomitant]

REACTIONS (4)
  - BLOOD THYROID STIMULATING HORMONE INCREASED [None]
  - HYPERTRIGLYCERIDAEMIA [None]
  - OBESITY [None]
  - TYPE 2 DIABETES MELLITUS [None]
